FAERS Safety Report 8964528 (Version 2)
Quarter: 2013Q1

REPORT INFORMATION
  Report Type: Spontaneous
  Country: CA (occurrence: CA)
  Receive Date: 20121214
  Receipt Date: 20130125
  Transmission Date: 20140127
  Serious: Yes (Other)
  Sender: FDA-Public Use
  Company Number: CA-ELI_LILLY_AND_COMPANY-CA201212000277

PATIENT
  Age: 67 Year
  Sex: Female

DRUGS (8)
  1. FORTEO [Suspect]
     Indication: OSTEOPOROSIS
     Dosage: 20 UG, QD
     Route: 058
     Dates: start: 20111130, end: 20121021
  2. METHOTREXATE [Concomitant]
  3. METOPROLOL [Concomitant]
  4. FUROSEMIDE [Concomitant]
  5. JAMP ASA [Concomitant]
  6. CRESTOR [Concomitant]
  7. FOLIC ACID [Concomitant]
  8. SYNTHROID [Concomitant]

REACTIONS (3)
  - Pancreatic carcinoma [Unknown]
  - Mass [Not Recovered/Not Resolved]
  - Jaundice [Not Recovered/Not Resolved]
